FAERS Safety Report 4345786-X (Version None)
Quarter: 2004Q2

REPORT INFORMATION
  Report Type: 
  Country: None (occurrence: None)
  Receive Date: 20040423
  Receipt Date: 19940508
  Transmission Date: 20050107
  Serious: Yes (Hospitalization)
  Sender: FDA-Public Use
  Company Number: KURZ00051

PATIENT
  Age: 50 Year
  Sex: Male

DRUGS (1)
  1. POVIDONE IODINE [Suspect]
     Dosage: 100 GRAM,  ORAL
     Route: 048

REACTIONS (2)
  - OVERDOSE [None]
  - VOMITING [None]
